FAERS Safety Report 9325703 (Version 2)
Quarter: 2013Q2

REPORT INFORMATION
  Report Type: Spontaneous
  Country: IL (occurrence: IL)
  Receive Date: 20130604
  Receipt Date: 20130606
  Transmission Date: 20140414
  Serious: Yes (Other)
  Sender: FDA-Public Use
  Company Number: PHHY2013IL055780

PATIENT
  Sex: Female

DRUGS (1)
  1. TRILEPTAL [Suspect]
     Indication: EPILEPSY
     Dosage: 1400 MG, (650 MG MORNING, 750 MG EVENING).

REACTIONS (4)
  - Epilepsy [Unknown]
  - Status epilepticus [Unknown]
  - Premature delivery [Unknown]
  - Maternal exposure during pregnancy [Unknown]
